FAERS Safety Report 14452787 (Version 1)
Quarter: 2018Q1

REPORT INFORMATION
  Report Type: Spontaneous
  Country: US (occurrence: US)
  Receive Date: 20180129
  Receipt Date: 20180129
  Transmission Date: 20180509
  Serious: No
  Sender: FDA-Public Use
  Company Number: US-ASTRAZENECA-2018SE10504

PATIENT
  Age: 371 Month
  Sex: Female

DRUGS (1)
  1. SYMBICORT [Suspect]
     Active Substance: BUDESONIDE\FORMOTEROL FUMARATE DIHYDRATE
     Indication: ASTHMA
     Dosage: 80/4.5, TWO INHALATIONS TWO TIMES A DAY
     Route: 055
     Dates: start: 201712, end: 201712

REACTIONS (6)
  - Drug hypersensitivity [Unknown]
  - Hypophagia [Unknown]
  - Drug ineffective [Unknown]
  - Oral discomfort [Unknown]
  - Oral mucosal eruption [Unknown]
  - General physical health deterioration [Unknown]

NARRATIVE: CASE EVENT DATE: 201712
